FAERS Safety Report 6840071-6 (Version None)
Quarter: 2010Q3

REPORT INFORMATION
  Report Type: 
  Country: None (occurrence: None)
  Receive Date: 20100713
  Receipt Date: 20100713
  Transmission Date: 20110219
  Serious: Yes (Hospitalization)
  Sender: FDA-Public Use
  Company Number: None

PATIENT
  Age: 81 Year
  Sex: Female
  Weight: 38.5557 kg

DRUGS (8)
  1. ABRAXANE [Suspect]
     Indication: SMALL CELL LUNG CANCER EXTENSIVE STAGE
     Dosage: 319 MG, Q 3WEEKS, IV
     Route: 042
     Dates: start: 20100412
  2. ABRAXANE [Suspect]
     Indication: SMALL CELL LUNG CANCER EXTENSIVE STAGE
     Dosage: 319 MG, Q 3WEEKS, IV
     Route: 042
     Dates: start: 20100503
  3. ABRAXANE [Suspect]
     Indication: SMALL CELL LUNG CANCER EXTENSIVE STAGE
     Dosage: 319 MG, Q 3WEEKS, IV
     Route: 042
     Dates: start: 20100524
  4. CARBOPLATIN [Suspect]
     Indication: SMALL CELL LUNG CANCER EXTENSIVE STAGE
     Dosage: AUG 6, Q 3WKS, IV
     Dates: start: 20100412
  5. CARBOPLATIN [Suspect]
     Indication: SMALL CELL LUNG CANCER EXTENSIVE STAGE
     Dosage: AUG 6, Q 3WKS, IV
     Dates: start: 20100503
  6. CARBOPLATIN [Suspect]
     Indication: SMALL CELL LUNG CANCER EXTENSIVE STAGE
     Dosage: AUG 6, Q 3WKS, IV
     Dates: start: 20100524
  7. PLAVIX [Concomitant]
  8. MEGACE [Concomitant]

REACTIONS (2)
  - DIARRHOEA [None]
  - VOMITING [None]
